FAERS Safety Report 5305986-9 (Version None)
Quarter: 2007Q2

REPORT INFORMATION
  Report Type: 
  Country: None (occurrence: None)
  Receive Date: 20070424
  Receipt Date: 20070420
  Transmission Date: 20071010
  Serious: Yes (Hospitalization)
  Sender: FDA-Public Use
  Company Number: US-BRISTOL-MYERS SQUIBB COMPANY-13754841

PATIENT
  Age: 51 Year
  Sex: Male
  Weight: 81 kg

DRUGS (3)
  1. CETUXIMAB [Suspect]
     Indication: NEOPLASM MALIGNANT
     Dates: start: 20070409, end: 20070409
  2. CISPLATIN [Suspect]
     Indication: NEOPLASM MALIGNANT
     Dates: start: 20070319, end: 20070319
  3. RADIATION THERAPY [Suspect]
     Indication: NEOPLASM MALIGNANT
     Dates: start: 20070406

REACTIONS (3)
  - CELLULITIS [None]
  - PAIN OF SKIN [None]
  - STOMATITIS [None]
